FAERS Safety Report 6839237-0 (Version None)
Quarter: 2010Q3

REPORT INFORMATION
  Report Type: 
  Country: None (occurrence: None)
  Receive Date: 20100714
  Receipt Date: 20100705
  Transmission Date: 20110219
  Serious: Yes (Other)
  Sender: FDA-Public Use
  Company Number: JP-JNJFOC-20100200796

PATIENT
  Sex: Male

DRUGS (11)
  1. FINIBAX [Suspect]
     Indication: POSTOPERATIVE WOUND INFECTION
     Route: 041
  2. ZYVOX [Concomitant]
     Indication: POSTOPERATIVE WOUND INFECTION
  3. PRODIF [Concomitant]
     Route: 065
  4. MEROPENEM [Concomitant]
     Indication: BACTERIAL INFECTION
     Route: 065
  5. HEPARIN AND PREPARATIONS [Concomitant]
     Route: 065
  6. BOSMIN [Concomitant]
     Route: 065
  7. SIGMART [Concomitant]
     Route: 065
  8. ANCARON [Concomitant]
     Route: 065
  9. OMEPRAL [Concomitant]
     Route: 065
  10. CEFAMEZIN [Concomitant]
     Indication: INFECTION PROPHYLAXIS
     Route: 065
  11. VANCOMYCIN [Concomitant]
     Indication: INFECTION PROPHYLAXIS
     Route: 065

REACTIONS (1)
  - HEPATIC FUNCTION ABNORMAL [None]
